FAERS Safety Report 24972178 (Version 1)
Quarter: 2025Q1

REPORT INFORMATION
  Report Type: Spontaneous
  Country: DE (occurrence: None)
  Receive Date: 20250214
  Receipt Date: 20250214
  Transmission Date: 20250408
  Serious: No
  Sender: ALEXION PHARMACEUTICALS
  Company Number: DE-AstraZeneca-2011SE07090

PATIENT
  Age: 82 Year

DRUGS (2)
  1. NEXIUM [Suspect]
     Active Substance: ESOMEPRAZOLE MAGNESIUM
     Indication: Helicobacter infection
     Dosage: 20 MILLIGRAM, QD
  2. VALIUM [Concomitant]
     Active Substance: DIAZEPAM

REACTIONS (1)
  - Tinnitus [Not Recovered/Not Resolved]
